FAERS Safety Report 12402909 (Version 2)
Quarter: 2016Q2

REPORT INFORMATION
  Report Type: Spontaneous
  Country: NL (occurrence: NL)
  Receive Date: 20160525
  Receipt Date: 20160606
  Transmission Date: 20160815
  Serious: Yes (Hospitalization)
  Sender: FDA-Public Use
  Company Number: PHHY2016NL068073

PATIENT
  Age: 3 Year
  Sex: Male
  Weight: 14 kg

DRUGS (2)
  1. SALBUTAMOL SANDOZ [Suspect]
     Active Substance: ALBUTEROL
     Indication: WHEEZING
     Dosage: 400 UG, QID,4 KEER PER DAG 4 STUK(S)
     Route: 055
     Dates: end: 20160502
  2. PREDNISOLON [Concomitant]
     Active Substance: PREDNISOLONE
     Indication: PRODUCT USED FOR UNKNOWN INDICATION
     Dosage: 10 MG, BID,EXTRA INFO: 2DD10MG
     Route: 048
     Dates: start: 20160430

REACTIONS (2)
  - Dyspnoea [Recovering/Resolving]
  - Product quality issue [Recovering/Resolving]

NARRATIVE: CASE EVENT DATE: 20160430
